FAERS Safety Report 6468074-4 (Version None)
Quarter: 2009Q4

REPORT INFORMATION
  Report Type: 
  Country: None (occurrence: None)
  Receive Date: 20091202
  Receipt Date: 20091123
  Transmission Date: 20100525
  Serious: Yes (Other)
  Sender: FDA-Public Use
  Company Number: US-AMGEN-QUU374090

PATIENT
  Sex: Female
  Weight: 55.8 kg

DRUGS (2)
  1. ARANESP [Suspect]
     Indication: MYELODYSPLASTIC SYNDROME
     Route: 065
     Dates: start: 20080325, end: 20080512
  2. LENALIDOMIDE [Concomitant]
     Indication: DRUG USE FOR UNKNOWN INDICATION
     Route: 048
     Dates: start: 20080512, end: 20090505

REACTIONS (10)
  - AORTIC OCCLUSION [None]
  - CAROTID ARTERY STENOSIS [None]
  - CORONARY ARTERY DISEASE [None]
  - COUGH [None]
  - DRUG INEFFECTIVE [None]
  - METABOLIC SYNDROME [None]
  - RASH [None]
  - RENAL FAILURE [None]
  - THROMBOCYTOPENIA [None]
  - VERTEBRAL ARTERY OCCLUSION [None]
